FAERS Safety Report 6389557-1 (Version None)
Quarter: 2009Q4

REPORT INFORMATION
  Report Type: 
  Country: None (occurrence: None)
  Receive Date: 20091003
  Receipt Date: 20090929
  Transmission Date: 20100525
  Serious: Yes (Hospitalization, Other)
  Sender: FDA-Public Use
  Company Number: 2009SP024983

PATIENT
  Sex: Female

DRUGS (1)
  1. MIRALAX [Suspect]
     Indication: INFREQUENT BOWEL MOVEMENTS
     Dosage: PO
     Route: 048

REACTIONS (4)
  - ABDOMINAL DISCOMFORT [None]
  - NO THERAPEUTIC RESPONSE [None]
  - PAIN [None]
  - PYREXIA [None]
